FAERS Safety Report 25705816 (Version 1)
Quarter: 2025Q3

REPORT INFORMATION
  Report Type: Spontaneous
  Country: US (occurrence: None)
  Receive Date: 20250819
  Receipt Date: 20250819
  Transmission Date: 20251020
  Serious: Yes (Disabling)
  Sender: FDA-CTU
  Company Number: None

PATIENT
  Age: 60 Year
  Sex: Male
  Weight: 103.05 kg

DRUGS (5)
  1. MOUNJARO [Suspect]
     Active Substance: TIRZEPATIDE
     Indication: Diabetes mellitus
     Route: 058
  2. INSULIN NOS [Concomitant]
     Active Substance: INSULIN NOS
  3. MOUNJARO [Concomitant]
     Active Substance: TIRZEPATIDE
  4. ACETAMINOPHEN [Concomitant]
     Active Substance: ACETAMINOPHEN
  5. IBUPROFEN [Concomitant]
     Active Substance: IBUPROFEN

REACTIONS (7)
  - Vomiting [None]
  - Diarrhoea [None]
  - Weight decreased [None]
  - Dyspepsia [None]
  - Abdominal distension [None]
  - Eructation [None]
  - Nausea [None]

NARRATIVE: CASE EVENT DATE: 20250813
